FAERS Safety Report 14785264 (Version 1)
Quarter: 2018Q2

REPORT INFORMATION
  Report Type: Spontaneous
  Country: US (occurrence: US)
  Receive Date: 20180420
  Receipt Date: 20180420
  Transmission Date: 20180711
  Serious: No
  Sender: FDA-Public Use
  Company Number: US-DUCHESNAY INC.-2017US017588

PATIENT
  Age: 65 Year
  Sex: Female

DRUGS (1)
  1. OSPHENA [Suspect]
     Active Substance: OSPEMIFENE
     Indication: VAGINAL PROLAPSE
     Dosage: 60 MG, DAILY
     Route: 048
     Dates: start: 20170422, end: 20170504

REACTIONS (7)
  - Breast pain [Recovered/Resolved]
  - Muscle spasms [Recovered/Resolved]
  - Off label use [Recovered/Resolved]
  - Peripheral swelling [None]
  - Abdominal distension [Recovered/Resolved]
  - Peripheral swelling [Recovered/Resolved]
  - Breast swelling [Recovered/Resolved]

NARRATIVE: CASE EVENT DATE: 20170429
